FAERS Safety Report 8148986-6 (Version None)
Quarter: 2012Q1

REPORT INFORMATION
  Report Type: 
  Country: None (occurrence: None)
  Receive Date: 20120218
  Receipt Date: 20120124
  Transmission Date: 20120608
  Serious: No
  Sender: FDA-Public Use
  Company Number: US-ALLERGAN-1110661US

PATIENT
  Age: 55 Year
  Sex: Female

DRUGS (6)
  1. BOTOX COSMETIC [Suspect]
     Indication: SKIN WRINKLING
     Dosage: UNK
     Route: 030
     Dates: start: 20110601, end: 20110601
  2. BOTOX COSMETIC [Suspect]
     Dosage: UNK
     Route: 030
     Dates: start: 20110101, end: 20110101
  3. BOTOX COSMETIC [Suspect]
     Dosage: UNK
     Dates: start: 20100101, end: 20100101
  4. RESTYLANE [Concomitant]
  5. XEOMIN [Concomitant]
  6. JUVEDERM [Concomitant]

REACTIONS (10)
  - COUGH [None]
  - GASTROOESOPHAGEAL REFLUX DISEASE [None]
  - NECK PAIN [None]
  - DIZZINESS [None]
  - APHONIA [None]
  - DRY THROAT [None]
  - HIATUS HERNIA [None]
  - SPEECH DISORDER [None]
  - DYSPHONIA [None]
  - DYSPHAGIA [None]
